FAERS Safety Report 9122974 (Version 1)
Quarter: 2013Q1

REPORT INFORMATION
  Report Type: Spontaneous
  Country: AU (occurrence: AU)
  Receive Date: 20130227
  Receipt Date: 20130227
  Transmission Date: 20140127
  Serious: Yes (Congenital Anomaly)
  Sender: FDA-Public Use
  Company Number: AU-SANOFI-AVENTIS-2013SA016291

PATIENT
  Age: 8 Month
  Sex: Male

DRUGS (1)
  1. PLAQUENIL [Suspect]
     Indication: PRODUCT USED FOR UNKNOWN INDICATION
     Route: 064
     Dates: start: 20100714, end: 20111119

REACTIONS (2)
  - Congenital genitourinary abnormality [Not Recovered/Not Resolved]
  - Foetal exposure during pregnancy [Unknown]
